FAERS Safety Report 7214298-8 (Version None)
Quarter: 2011Q1

REPORT INFORMATION
  Report Type: 
  Country: None (occurrence: None)
  Receive Date: 20110107
  Receipt Date: 20110105
  Transmission Date: 20110831
  Serious: Yes (Other)
  Sender: FDA-Public Use
  Company Number: IT-BRISTOL-MYERS SQUIBB COMPANY-15471741

PATIENT
  Age: 89 Year
  Sex: Female

DRUGS (5)
  1. CLENIL [Suspect]
     Indication: BRONCHOPNEUMOPATHY
     Route: 055
     Dates: start: 20101108, end: 20101112
  2. MACLADIN [Suspect]
     Indication: BRONCHOPNEUMOPATHY
     Dates: start: 20101108, end: 20101112
  3. SEQUACOR [Concomitant]
  4. COUMADIN [Suspect]
     Indication: ATRIAL FIBRILLATION
     Dosage: INTERRUPTED ON 16NOV10 AND RESTARTED
     Route: 048
     Dates: start: 20030821
  5. GLUCOPHAGE [Concomitant]

REACTIONS (2)
  - BRONCHOPNEUMOPATHY [None]
  - INTERNATIONAL NORMALISED RATIO INCREASED [None]
